FAERS Safety Report 7435051-6 (Version None)
Quarter: 2011Q2

REPORT INFORMATION
  Report Type: 
  Country: None (occurrence: None)
  Receive Date: 20110425
  Receipt Date: 20110412
  Transmission Date: 20111010
  Serious: Yes (Hospitalization)
  Sender: FDA-Public Use
  Company Number: PHHY2010CA14373

PATIENT
  Sex: Male

DRUGS (4)
  1. CLOZARIL [Suspect]
     Dates: start: 20090501
  2. CLOZARIL [Suspect]
     Dosage: 375 MG, DAILY
     Route: 048
  3. CHAMPIX [Concomitant]
  4. CLOZARIL [Suspect]
     Indication: SCHIZOPHRENIA
     Dosage: 75 MG OF AM+LUNCH, 100 MG 9 SUPPER +QHS
     Route: 048
     Dates: start: 20090301

REACTIONS (5)
  - WHITE BLOOD CELL COUNT INCREASED [None]
  - INCOHERENT [None]
  - NEUTROPHIL COUNT INCREASED [None]
  - EOSINOPHIL COUNT INCREASED [None]
  - MONOCYTE COUNT INCREASED [None]
